FAERS Safety Report 8432406-8 (Version None)
Quarter: 2012Q2

REPORT INFORMATION
  Report Type: 
  Country: None (occurrence: None)
  Receive Date: 20120607
  Receipt Date: 20120525
  Transmission Date: 20120825
  Serious: Yes (Hospitalization, Other)
  Sender: FDA-Public Use
  Company Number: JPI-P-005521

PATIENT
  Age: 76 Year
  Sex: Male
  Weight: 80.7403 kg

DRUGS (9)
  1. VENLAFAXINE HCL [Concomitant]
  2. CLOPIDOGREL BISULFATE [Concomitant]
  3. SIMVASTATIN [Concomitant]
  4. FISH OIL [Concomitant]
  5. ALLOPURINOL [Concomitant]
  6. XYREM [Suspect]
     Indication: CATAPLEXY
     Dosage: 5 GM (2.5 GN, 2  IN 1 D), ORAL
     Route: 048
     Dates: start: 20070321
  7. MODAFINIL [Concomitant]
  8. METOPROLOL SUCCINATE [Concomitant]
  9. LISINOPRIL [Concomitant]

REACTIONS (2)
  - ATRIAL FIBRILLATION [None]
  - CORONARY ARTERY OCCLUSION [None]
